FAERS Safety Report 16186673 (Version 2)
Quarter: 2019Q2

REPORT INFORMATION
  Report Type: Spontaneous
  Country: JP (occurrence: JP)
  Receive Date: 20190411
  Receipt Date: 20190508
  Transmission Date: 20190711
  Serious: Yes (Death, Life-Threatening, Hospitalization, Other)
  Sender: FDA-Public Use
  Company Number: JP-BAUSCH-BL-2019-010490

PATIENT
  Age: 62 Year
  Sex: Female

DRUGS (4)
  1. LENALIDOMIDE [Suspect]
     Active Substance: LENALIDOMIDE
     Indication: PLASMA CELL MYELOMA
     Dosage: 10 MG/DAY; PER DAY; CYCLICAL
     Route: 065
  2. DARATUMUMAB [Suspect]
     Active Substance: DARATUMUMAB
     Indication: PLASMA CELL MYELOMA
     Dosage: 16 MG/KG, EVERY WEEK; 3 CYCLICAL
     Route: 065
  3. LEVETIRACETAM. [Concomitant]
     Active Substance: LEVETIRACETAM
     Indication: EPILEPSY
  4. DEXAMETHASONE. [Suspect]
     Active Substance: DEXAMETHASONE
     Indication: PLASMA CELL MYELOMA
     Dosage: 40 MG/WEEK
     Route: 065

REACTIONS (7)
  - Lymphopenia [Not Recovered/Not Resolved]
  - Partial seizures [Recovered/Resolved]
  - Disseminated cryptococcosis [Fatal]
  - Respiratory arrest [Unknown]
  - Loss of consciousness [Not Recovered/Not Resolved]
  - Hypogammaglobulinaemia [Unknown]
  - Meningitis cryptococcal [Fatal]
